FAERS Safety Report 6323350-0 (Version None)
Quarter: 2009Q3

REPORT INFORMATION
  Report Type: 
  Country: None (occurrence: None)
  Receive Date: 20090824
  Receipt Date: 20090408
  Transmission Date: 20100115
  Serious: No
  Sender: FDA-Public Use
  Company Number: US-ABBOTT-09P-163-0567336-00

PATIENT
  Sex: Female
  Weight: 56.296 kg

DRUGS (4)
  1. NIASPAN [Suspect]
     Indication: FAMILIAL RISK FACTOR
     Route: 048
     Dates: start: 20030101, end: 20080101
  2. NIASPAN [Suspect]
     Route: 048
     Dates: start: 20080101, end: 20080101
  3. NIASPAN [Suspect]
     Indication: FAMILIAL RISK FACTOR
     Route: 048
     Dates: start: 20080101
  4. ASPIRIN [Concomitant]
     Indication: DRUG USE FOR UNKNOWN INDICATION
     Route: 048

REACTIONS (2)
  - FLUSHING [None]
  - MEDICATION RESIDUE [None]
